FAERS Safety Report 6644019-9 (Version None)
Quarter: 2010Q1

REPORT INFORMATION
  Report Type: 
  Country: None (occurrence: None)
  Receive Date: 20100317
  Receipt Date: 20100302
  Transmission Date: 20100710
  Serious: Yes (Hospitalization, Other)
  Sender: FDA-Public Use
  Company Number: 1-21602803

PATIENT
  Age: 53 Year
  Sex: Female

DRUGS (4)
  1. ALLOPURINOL [Suspect]
     Indication: HYPERURICAEMIA
  2. CLARITHROMYCIN [Suspect]
     Indication: NASOPHARYNGITIS
  3. LOXOPROFEN SODIUM [Suspect]
     Indication: OROPHARYNGEAL PAIN
     Dosage: ORAL
     Route: 048
  4. LOXOPROFEN SODIUM [Suspect]
     Indication: PYREXIA
     Dosage: ORAL
     Route: 048

REACTIONS (1)
  - STEVENS-JOHNSON SYNDROME [None]
